FAERS Safety Report 13671141 (Version 3)
Quarter: 2017Q4

REPORT INFORMATION
  Report Type: Spontaneous
  Country: AU (occurrence: AU)
  Receive Date: 20170620
  Receipt Date: 20171004
  Transmission Date: 20180320
  Serious: Yes (Hospitalization)
  Sender: FDA-Public Use
  Company Number: AU-ELI_LILLY_AND_COMPANY-AU201706005834

PATIENT
  Age: 41 Year
  Sex: Male
  Weight: 56 kg

DRUGS (2)
  1. ZYPREXA RELPREVV [Suspect]
     Active Substance: OLANZAPINE PAMOATE
     Indication: SCHIZOPHRENIA
     Dosage: 300 MG, 2/M
     Route: 030
     Dates: start: 20141018
  2. ZYPREXA RELPREVV [Suspect]
     Active Substance: OLANZAPINE PAMOATE
     Indication: SCHIZOPHRENIA

REACTIONS (5)
  - Sedation [Recovered/Resolved]
  - Dizziness [Recovered/Resolved]
  - Disorientation [Recovered/Resolved]
  - Post-injection delirium sedation syndrome [Recovered/Resolved]
  - Ataxia [Recovered/Resolved]

NARRATIVE: CASE EVENT DATE: 20170521
